FAERS Safety Report 4993223-4 (Version None)
Quarter: 2006Q1

REPORT INFORMATION
  Report Type: 
  Country: None (occurrence: None)
  Receive Date: 20060314
  Receipt Date: 20050114
  Transmission Date: 20060701
  Serious: Yes (Other)
  Sender: FDA-Public Use
  Company Number: 200510240BCC

PATIENT
  Sex: Female
  Weight: 63.05 kg

DRUGS (12)
  1. ALEVE (CAPLET) [Suspect]
     Indication: PAIN
     Dosage: PRN, ORAL
     Route: 048
  2. ASPIRIN [Suspect]
     Dosage: 81 MG
  3. ZELNORM [Concomitant]
  4. TOPROL-XL [Concomitant]
  5. NORVASC [Concomitant]
  6. CLARINEX /USA/ [Concomitant]
  7. PROTONIX [Concomitant]
  8. BENICAR [Concomitant]
  9. ISOSORBIDE [Concomitant]
  10. SINGULAIR [Concomitant]
  11. LIPITOR [Concomitant]
  12. MIACALCIN SPRAY [Concomitant]

REACTIONS (1)
  - RECTAL HAEMORRHAGE [None]
